FAERS Safety Report 15276051 (Version 3)
Quarter: 2018Q4

REPORT INFORMATION
  Report Type: Spontaneous
  Country: US (occurrence: US)
  Receive Date: 20180814
  Receipt Date: 20181214
  Transmission Date: 20190204
  Serious: Yes (Other)
  Sender: FDA-Public Use
  Company Number: US-ASTRAZENECA-2018SF00476

PATIENT
  Sex: Male
  Weight: 70.8 kg

DRUGS (59)
  1. NEXIUM [Suspect]
     Active Substance: ESOMEPRAZOLE MAGNESIUM
     Indication: GASTROOESOPHAGEAL REFLUX DISEASE
     Route: 048
     Dates: start: 20070515
  2. CEPHALEXIN. [Concomitant]
     Active Substance: CEPHALEXIN
     Dates: start: 20081208, end: 20081222
  3. CEPHALEXIN. [Concomitant]
     Active Substance: CEPHALEXIN
     Dates: start: 20130312, end: 20130507
  4. LEVOFLOXACIN. [Concomitant]
     Active Substance: LEVOFLOXACIN
     Indication: HELICOBACTER INFECTION
     Dates: start: 20171101, end: 20171115
  5. PLAVIX [Concomitant]
     Active Substance: CLOPIDOGREL BISULFATE
     Indication: MYOCARDIAL INFARCTION
     Dates: start: 20040102, end: 20040214
  6. PLAVIX [Concomitant]
     Active Substance: CLOPIDOGREL BISULFATE
     Indication: MYOCARDIAL INFARCTION
     Dates: start: 20080725, end: 20090107
  7. TRIAMTERENE. [Concomitant]
     Active Substance: TRIAMTERENE
     Indication: URINARY TRACT INFECTION
     Dates: start: 20130102, end: 20130215
  8. FENOFIBRATE. [Concomitant]
     Active Substance: FENOFIBRATE
  9. NEXIUM [Suspect]
     Active Substance: ESOMEPRAZOLE MAGNESIUM
     Indication: GASTROOESOPHAGEAL REFLUX DISEASE
     Route: 048
     Dates: start: 20051209, end: 20140318
  10. NEXIUM [Suspect]
     Active Substance: ESOMEPRAZOLE MAGNESIUM
     Indication: GASTROOESOPHAGEAL REFLUX DISEASE
     Dosage: GENERIC
     Route: 065
  11. NEXIUM [Suspect]
     Active Substance: ESOMEPRAZOLE MAGNESIUM
     Indication: GASTROOESOPHAGEAL REFLUX DISEASE
     Route: 048
     Dates: start: 20081208
  12. ALLOPURINOL. [Concomitant]
     Active Substance: ALLOPURINOL
     Indication: BLOOD URIC ACID DECREASED
     Dates: start: 20120413, end: 20130315
  13. CIPROFLOXACIN. [Concomitant]
     Active Substance: CIPROFLOXACIN
     Indication: URINARY TRACT INFECTION
     Dates: start: 20170519
  14. TRIAMTERENE. [Concomitant]
     Active Substance: TRIAMTERENE
     Indication: PROSTATITIS
     Dates: start: 20040922, end: 20050622
  15. TRIAMTERENE. [Concomitant]
     Active Substance: TRIAMTERENE
     Indication: PROSTATITIS
     Dates: start: 20150312, end: 20150512
  16. TOPIRAMATE. [Concomitant]
     Active Substance: TOPIRAMATE
     Dates: start: 20150305
  17. METFORMIN [Concomitant]
     Active Substance: METFORMIN HYDROCHLORIDE
  18. METHYLPREDNISOLONE. [Concomitant]
     Active Substance: METHYLPREDNISOLONE
     Dosage: 80.0MG/ML ONCE/SINGLE ADMINISTRATION
     Route: 065
     Dates: start: 20170404
  19. OMEPRAZOLE. [Suspect]
     Active Substance: OMEPRAZOLE
     Route: 065
     Dates: start: 20171101, end: 20171201
  20. ASPIRIN. [Concomitant]
     Active Substance: ASPIRIN
     Indication: MYOCARDIAL INFARCTION
     Dosage: 325 MG, 81 MG
  21. VITAMIN D [Concomitant]
     Active Substance: CHOLECALCIFEROL
     Dates: start: 20090303, end: 20090903
  22. ALLOPURINOL. [Concomitant]
     Active Substance: ALLOPURINOL
     Indication: BLOOD URIC ACID DECREASED
     Dates: start: 20150625
  23. LEVOFLOXACIN. [Concomitant]
     Active Substance: LEVOFLOXACIN
     Indication: HELICOBACTER INFECTION
     Dates: start: 20171129, end: 20171205
  24. TRIAMTERENE. [Concomitant]
     Active Substance: TRIAMTERENE
     Indication: PROSTATITIS
     Dates: start: 20130102, end: 20130215
  25. TYLENOL [Concomitant]
     Active Substance: ACETAMINOPHEN
     Indication: FATIGUE
  26. BENADRYL [Concomitant]
     Active Substance: DIPHENHYDRAMINE HYDROCHLORIDE
     Indication: ANTIALLERGIC THERAPY
     Dates: start: 20080731, end: 20101101
  27. PEPCID AC [Concomitant]
     Active Substance: FAMOTIDINE
  28. HYDROCHLOROTHIAZIDE. [Concomitant]
     Active Substance: HYDROCHLOROTHIAZIDE
     Indication: DIURETIC THERAPY
     Dates: start: 20160721
  29. LOSARTAN. [Concomitant]
     Active Substance: LOSARTAN
     Indication: HYPERTENSION
     Dates: start: 20160721
  30. PENICILLIN [Concomitant]
     Active Substance: PENICILLIN
     Indication: COUGH
     Dates: start: 20060301, end: 20060311
  31. SIMVASTATIN. [Concomitant]
     Active Substance: SIMVASTATIN
     Indication: DYSLIPIDAEMIA
     Dates: start: 20080725, end: 20100129
  32. SIMVASTATIN. [Concomitant]
     Active Substance: SIMVASTATIN
     Indication: DYSLIPIDAEMIA
     Dates: start: 20100603, end: 20100703
  33. GABAPENTIN. [Concomitant]
     Active Substance: GABAPENTIN
  34. PRENATAL [Concomitant]
     Active Substance: VITAMINS
     Dates: start: 20081215, end: 20090102
  35. ZINC. [Concomitant]
     Active Substance: ZINC
     Dates: start: 20081215, end: 20090102
  36. CIPROFLOXACIN. [Concomitant]
     Active Substance: CIPROFLOXACIN
     Indication: URINARY TRACT INFECTION
     Dates: start: 20121203, end: 20121213
  37. OXYCODONE [Concomitant]
     Active Substance: OXYCODONE
     Dosage: 20.0MG AS REQUIRED
     Dates: start: 20150305
  38. KLOR-CON [Concomitant]
     Active Substance: POTASSIUM CHLORIDE
     Route: 048
     Dates: start: 20180413
  39. MIRALAX [Concomitant]
     Active Substance: POLYETHYLENE GLYCOL 3350
     Indication: CONSTIPATION
     Dates: start: 20171127
  40. VITAMIN C [Concomitant]
     Active Substance: ASCORBIC ACID
     Dates: start: 20081215, end: 20090102
  41. CARBAMAZEPINE. [Concomitant]
     Active Substance: CARBAMAZEPINE
     Indication: PELVIC PAIN
     Dates: start: 20150331
  42. CEPHALEXIN. [Concomitant]
     Active Substance: CEPHALEXIN
     Dates: start: 20170405, end: 20170415
  43. SIMVASTATIN. [Concomitant]
     Active Substance: SIMVASTATIN
     Indication: DYSLIPIDAEMIA
     Dates: start: 20150908
  44. MORPHINE [Concomitant]
     Active Substance: MORPHINE
     Route: 048
     Dates: start: 20180411
  45. ESTER C [Concomitant]
     Dates: start: 20090303, end: 20130603
  46. RANITIDINE. [Concomitant]
     Active Substance: RANITIDINE
     Dates: start: 20170918, end: 20180715
  47. CIPROFLOXACIN. [Concomitant]
     Active Substance: CIPROFLOXACIN
     Indication: URINARY TRACT INFECTION
     Dates: start: 20130213, end: 20130313
  48. TRIAMTERENE. [Concomitant]
     Active Substance: TRIAMTERENE
     Indication: URINARY TRACT INFECTION
     Dates: start: 20150312, end: 20150512
  49. PROTONIX [Concomitant]
     Active Substance: PANTOPRAZOLE SODIUM
     Route: 048
     Dates: start: 20081204
  50. NEXIUM [Suspect]
     Active Substance: ESOMEPRAZOLE MAGNESIUM
     Indication: GASTROOESOPHAGEAL REFLUX DISEASE
     Route: 048
     Dates: start: 20030726, end: 20150119
  51. COLACE [Concomitant]
     Active Substance: DOCUSATE SODIUM
     Indication: CONSTIPATION
     Dates: start: 20130602
  52. CIPROFLOXACIN. [Concomitant]
     Active Substance: CIPROFLOXACIN
     Indication: URINARY TRACT INFECTION
     Dates: start: 20140120, end: 20140302
  53. CIPROFLOXACIN. [Concomitant]
     Active Substance: CIPROFLOXACIN
     Indication: URINARY TRACT INFECTION
     Dates: start: 20161230, end: 20170107
  54. DOXYCYCLINE. [Concomitant]
     Active Substance: DOXYCYCLINE
     Indication: PROSTATITIS
     Dates: start: 20141223
  55. SIMVASTATIN. [Concomitant]
     Active Substance: SIMVASTATIN
     Indication: DYSLIPIDAEMIA
     Dates: start: 20110808, end: 20120318
  56. TRIAMTERENE. [Concomitant]
     Active Substance: TRIAMTERENE
     Indication: URINARY TRACT INFECTION
     Dates: start: 20040922, end: 20050622
  57. LASIX [Concomitant]
     Active Substance: FUROSEMIDE
     Route: 042
     Dates: start: 20180412
  58. TOPROL XL [Concomitant]
     Active Substance: METOPROLOL SUCCINATE
     Route: 048
     Dates: start: 20180414
  59. NOVOLOG [Concomitant]
     Active Substance: INSULIN ASPART
     Dosage: 100 UNITS PER ML- 10ML
     Route: 058
     Dates: start: 200312

REACTIONS (5)
  - Chronic kidney disease [Not Recovered/Not Resolved]
  - Nephrogenic anaemia [Unknown]
  - Nephropathy [Unknown]
  - Acute kidney injury [Unknown]
  - Renal failure [Unknown]
